FAERS Safety Report 19172346 (Version 1)
Quarter: 2021Q2

REPORT INFORMATION
  Report Type: Spontaneous
  Country: US (occurrence: US)
  Receive Date: 20210422
  Receipt Date: 20210422
  Transmission Date: 20210717
  Serious: Yes (Other)
  Sender: FDA-Public Use
  Company Number: None

PATIENT
  Age: 33 Year
  Sex: Female
  Weight: 77.56 kg

DRUGS (2)
  1. SUBOXONE [Suspect]
     Active Substance: BUPRENORPHINE HYDROCHLORIDE\NALOXONE HYDROCHLORIDE
     Indication: DRUG USE DISORDER
     Dosage: ?          OTHER ROUTE:FILMSTRIP?
     Dates: start: 20210118, end: 20210316
  2. BUPRENORPHINE NALOXONE TAB 8MG TID [Suspect]
     Active Substance: BUPRENORPHINE\NALOXONE
     Dates: start: 20210331

REACTIONS (2)
  - Abdominal pain upper [None]
  - Paraesthesia [None]
